FAERS Safety Report 4950159-2 (Version None)
Quarter: 2006Q1

REPORT INFORMATION
  Report Type: 
  Country: None (occurrence: None)
  Receive Date: 20060316
  Receipt Date: 20060228
  Transmission Date: 20060701
  Serious: Yes (Hospitalization)
  Sender: FDA-Public Use
  Company Number: DSA_27791_2006

PATIENT
  Age: 24 Year
  Sex: Female

DRUGS (3)
  1. TAVOR [Suspect]
     Dosage: 20 MG ONCE PO
     Route: 048
     Dates: start: 20060211, end: 20060211
  2. FLUOXETINE HCL [Suspect]
     Dosage: DF ONCE PO
     Route: 048
     Dates: start: 20060211, end: 20060211
  3. PAROXETINE [Suspect]
     Dosage: 80 MG ONCE PO
     Route: 048
     Dates: start: 20060211, end: 20060211

REACTIONS (5)
  - DIZZINESS [None]
  - MULTIPLE DRUG OVERDOSE [None]
  - NAUSEA [None]
  - SUICIDE ATTEMPT [None]
  - VOMITING [None]
